FAERS Safety Report 9454904 (Version 2)
Quarter: 2013Q3

REPORT INFORMATION
  Report Type: Spontaneous
  Country: DK (occurrence: DK)
  Receive Date: 20130813
  Receipt Date: 20130816
  Transmission Date: 20140515
  Serious: Yes (Other)
  Sender: FDA-Public Use
  Company Number: DK-JNJFOC-20130802905

PATIENT
  Age: 34 Year
  Sex: Female

DRUGS (5)
  1. IMODIUM PLUS [Suspect]
     Route: 048
  2. IMODIUM PLUS [Suspect]
     Indication: DIARRHOEA
     Route: 048
     Dates: start: 20130418, end: 20130625
  3. MAREVAN [Suspect]
     Indication: THROMBOSIS
     Route: 065
  4. MARCOUMAR [Suspect]
     Indication: THROMBOSIS
     Route: 065
  5. ALNOK [Concomitant]
     Indication: URTICARIA
     Route: 065

REACTIONS (4)
  - Convulsion [Recovered/Resolved]
  - Syncope [Recovered/Resolved]
  - Dyspnoea [Recovered/Resolved]
  - Fall [None]
